FAERS Safety Report 7214977-2 (Version None)
Quarter: 2011Q1

REPORT INFORMATION
  Report Type: 
  Country: None (occurrence: None)
  Receive Date: 20110107
  Receipt Date: 20100607
  Transmission Date: 20110831
  Serious: No
  Sender: FDA-Public Use
  Company Number: A0866176A

PATIENT
  Age: 71 Year
  Sex: Male

DRUGS (6)
  1. WELCHOL [Concomitant]
  2. TRICOR [Concomitant]
  3. NIACIN [Concomitant]
  4. ZETIA [Concomitant]
  5. CHOLESTOFF [Concomitant]
  6. LOVAZA [Suspect]
     Dosage: 2CAP PER DAY
     Route: 065

REACTIONS (2)
  - DRUG INEFFECTIVE [None]
  - BLOOD TRIGLYCERIDES INCREASED [None]
